FAERS Safety Report 7386494-0 (Version None)
Quarter: 2011Q1

REPORT INFORMATION
  Report Type: 
  Country: None (occurrence: None)
  Receive Date: 20110323
  Receipt Date: 20110308
  Transmission Date: 20110831
  Serious: Yes (Other)
  Sender: FDA-Public Use
  Company Number: 20110201

PATIENT
  Sex: Male

DRUGS (1)
  1. METHYLENE BLUE INJECTION, USP [Suspect]
     Dosage: INTRAVENOUS
     Route: 042

REACTIONS (8)
  - MENTAL STATUS CHANGES POSTOPERATIVE [None]
  - URINARY TRACT DISORDER [None]
  - AGITATION POSTOPERATIVE [None]
  - OFF LABEL USE [None]
  - CYANOSIS [None]
  - CONFUSION POSTOPERATIVE [None]
  - GASTROINTESTINAL TRACT IRRITATION [None]
  - NEUROTOXICITY [None]
